FAERS Safety Report 19020123 (Version 1)
Quarter: 2021Q1

REPORT INFORMATION
  Report Type: Spontaneous
  Country: VN (occurrence: VN)
  Receive Date: 20210317
  Receipt Date: 20210317
  Transmission Date: 20210420
  Serious: Yes (Death, Hospitalization, Other)
  Sender: FDA-Public Use
  Company Number: VN-HISUN PHARMACEUTICALS-2108098

PATIENT
  Age: 57 Year
  Sex: Female

DRUGS (2)
  1. DAUNORUBICIN HYDROCHLORIDE. [Suspect]
     Active Substance: DAUNORUBICIN HYDROCHLORIDE
     Indication: ACUTE MYELOID LEUKAEMIA
     Route: 042
  2. CYTARABINE. [Suspect]
     Active Substance: CYTARABINE

REACTIONS (3)
  - Cardiogenic shock [Fatal]
  - Coronary artery dissection [Fatal]
  - Acute myocardial infarction [Fatal]
